FAERS Safety Report 9702235 (Version 2)
Quarter: 2014Q3

REPORT INFORMATION
  Report Type: Spontaneous
  Country: US (occurrence: None)
  Receive Date: 20131119
  Receipt Date: 20140925
  Transmission Date: 20150326
  Serious: Yes (Hospitalization, Other)
  Sender: FDA-Public Use
  Company Number: 2013US002824

PATIENT
  Age: 67 Year
  Sex: Female
  Weight: 52 kg

DRUGS (22)
  1. MAGNESIUM (MAGNESIUM) [Concomitant]
     Active Substance: MAGNESIUM
  2. MULTI-VIT (VITAMIN NOS) [Concomitant]
  3. DILTIAZEM (DILTIAZEM HYDROCHLORIDE) [Concomitant]
  4. LEVOTHYROXIN (LEVOTHYROXINE SODIUM) [Concomitant]
  5. LISINOPRIL (LISINOPRIL DIHYDRATE) [Concomitant]
  6. OMEGA 3 SELECT (FISH OIL) [Concomitant]
  7. PONATINIB (AP24534) [Suspect]
     Active Substance: PONATINIB
     Indication: CHRONIC MYELOID LEUKAEMIA
     Route: 048
     Dates: start: 20090729, end: 20130115
  8. B12 (CYANOCOBALAMIN) [Concomitant]
  9. MIRALAX [Concomitant]
     Active Substance: POLYETHYLENE GLYCOL 3350
  10. PLAVIX (CLOPIDOGREL BISULFATE) [Concomitant]
  11. SYMBICORT [Concomitant]
     Active Substance: BUDESONIDE\FORMOTEROL FUMARATE DIHYDRATE
  12. TEMAZEPAM (TEMAZEPAM) [Concomitant]
     Active Substance: TEMAZEPAM
  13. PONATINIB (AP24534) [Suspect]
     Active Substance: PONATINIB
     Indication: HAEMATOLOGICAL MALIGNANCY
     Route: 048
     Dates: start: 20090729, end: 20130115
  14. ALBUTEROL (ALBUTEROL) [Concomitant]
  15. VITAMIN C [Concomitant]
     Active Substance: ASCORBIC ACID
  16. BENADRYL [Concomitant]
     Active Substance: DIPHENHYDRAMINE HYDROCHLORIDE
  17. CALCIUM AND VITAMIN D (CALCIUM, COLECALCIFEROL) [Concomitant]
  18. PEPCID [Concomitant]
     Active Substance: FAMOTIDINE
  19. ASPIRIN (ASPIRIN) [Concomitant]
     Active Substance: ASPIRIN
  20. CRESTOR [Concomitant]
     Active Substance: ROSUVASTATIN CALCIUM
  21. SPIRIVA [Concomitant]
     Active Substance: TIOTROPIUM BROMIDE MONOHYDRATE
  22. ZYRTEC [Concomitant]
     Active Substance: CETIRIZINE HYDROCHLORIDE

REACTIONS (5)
  - Skin ulcer [None]
  - Peripheral arterial occlusive disease [None]
  - Peripheral ischaemia [None]
  - Impaired healing [None]
  - Disease recurrence [None]

NARRATIVE: CASE EVENT DATE: 20131104
